FAERS Safety Report 24451585 (Version 1)
Quarter: 2024Q4

REPORT INFORMATION
  Report Type: Spontaneous
  Country: IT (occurrence: IT)
  Receive Date: 20241017
  Receipt Date: 20241017
  Transmission Date: 20250115
  Serious: Yes (Hospitalization, Other)
  Sender: NOVARTIS
  Company Number: IT-002147023-NVSC2024IT199805

PATIENT
  Age: 44 Year
  Sex: Male

DRUGS (4)
  1. DABRAFENIB [Suspect]
     Active Substance: DABRAFENIB
     Indication: BRAF V600E mutation positive
     Dosage: UNK
     Route: 065
     Dates: start: 202001
  2. DABRAFENIB [Suspect]
     Active Substance: DABRAFENIB
     Dosage: UNK
     Route: 065
     Dates: start: 202307
  3. TRAMETINIB [Suspect]
     Active Substance: TRAMETINIB
     Indication: BRAF V600E mutation positive
     Dosage: UNK
     Route: 065
     Dates: start: 202001
  4. TRAMETINIB [Suspect]
     Active Substance: TRAMETINIB
     Dosage: UNK
     Route: 065
     Dates: start: 202307

REACTIONS (12)
  - Pyrexia [Not Recovered/Not Resolved]
  - Abdominal pain [Not Recovered/Not Resolved]
  - Metastases to central nervous system [Unknown]
  - Lung neoplasm [Unknown]
  - Malignant splenic neoplasm [Unknown]
  - Hepatic neoplasm [Unknown]
  - Malignant neoplasm progression [Unknown]
  - BRAF V600E mutation positive [Unknown]
  - Aspartate aminotransferase increased [Unknown]
  - Alanine aminotransferase increased [Unknown]
  - Rash [Unknown]
  - Hypertension [Unknown]
